FAERS Safety Report 22236177 (Version 1)
Quarter: 2023Q2

REPORT INFORMATION
  Report Type: Spontaneous
  Country: US (occurrence: US)
  Receive Date: 20230420
  Receipt Date: 20230420
  Transmission Date: 20230722
  Serious: No
  Sender: FDA-Public Use
  Company Number: US-ANIPHARMA-2022-US-026699

PATIENT
  Age: 62 Year
  Sex: Female
  Weight: 81.65 kg

DRUGS (6)
  1. INDERAL LA [Suspect]
     Active Substance: PROPRANOLOL HYDROCHLORIDE
     Indication: Product used for unknown indication
     Route: 048
     Dates: start: 20221012
  2. INSULIN NOS [Concomitant]
     Active Substance: INSULIN NOS
  3. VITAMINS [Concomitant]
     Active Substance: VITAMINS
  4. TYLENOL [Concomitant]
     Active Substance: ACETAMINOPHEN
  5. MOTRIN [Concomitant]
     Active Substance: IBUPROFEN
  6. BUTALBITAL [Concomitant]
     Active Substance: BUTALBITAL

REACTIONS (3)
  - Condition aggravated [Not Recovered/Not Resolved]
  - Alopecia [Not Recovered/Not Resolved]
  - Chest pain [Not Recovered/Not Resolved]

NARRATIVE: CASE EVENT DATE: 20221012
